APPROVED DRUG PRODUCT: LIDOCAINE HYDROCHLORIDE AND EPINEPHRINE
Active Ingredient: EPINEPHRINE; LIDOCAINE HYDROCHLORIDE
Strength: 0.01MG/ML;2%
Dosage Form/Route: INJECTABLE;INJECTION
Application: A040057 | Product #002
Applicant: EASTMAN KODAK CO
Approved: Feb 26, 1993 | RLD: No | RS: No | Type: DISCN